FAERS Safety Report 8912835 (Version 2)
Quarter: 2012Q4

REPORT INFORMATION
  Report Type: 
  Country: US (occurrence: US)
  Receive Date: 20121116
  Receipt Date: 20121128
  Transmission Date: 20130627
  Serious: Yes (Hospitalization, Other)
  Sender: FDA-Public Use
  Company Number: US-TEVA-370308USA

PATIENT
  Age: 67 Year
  Sex: Female

DRUGS (7)
  1. SIMVASTATIN [Suspect]
     Dosage: 40mg daily
     Route: 065
  2. INSULIN GLARGINE [Concomitant]
     Dosage: 20 units daily
     Route: 065
  3. INSULIN ASPART [Concomitant]
     Dosage: 3 units before each meal
     Route: 065
  4. CARVEDILOL [Concomitant]
     Route: 065
  5. ASPIRIN [Concomitant]
     Dosage: 81mg daily
     Route: 065
  6. WARFARIN [Concomitant]
     Dosage: 6-7mg daily
     Route: 065
  7. FUROSEMIDE [Concomitant]
     Dosage: 40mg daily
     Route: 065

REACTIONS (3)
  - Food interaction [Recovered/Resolved]
  - Rhabdomyolysis [Recovered/Resolved]
  - Hepatitis [Recovered/Resolved]
